FAERS Safety Report 6172527-6 (Version None)
Quarter: 2009Q2

REPORT INFORMATION
  Report Type: 
  Country: None (occurrence: None)
  Receive Date: 20090427
  Receipt Date: 20090413
  Transmission Date: 20091009
  Serious: Yes (Hospitalization)
  Sender: FDA-Public Use
  Company Number: 2009AL002132

PATIENT
  Age: 52 Year
  Sex: Female

DRUGS (7)
  1. TICLOPIDINE HYDROCHLORIDE [Suspect]
     Dosage: 250 MG;
  2. FUROSEMIDE [Concomitant]
  3. DIGOXIN [Concomitant]
  4. CARVEDILOL [Concomitant]
  5. ASPIRIN [Concomitant]
  6. PROPRANOLOL [Concomitant]
  7. FENOFIBRATE [Concomitant]

REACTIONS (11)
  - ADRENAL DISORDER [None]
  - ANAEMIA MEGALOBLASTIC [None]
  - APLASIA PURE RED CELL [None]
  - BLOOD PRESSURE SYSTOLIC DECREASED [None]
  - DIABETES MELLITUS [None]
  - DIARRHOEA [None]
  - HEPATITIS CHOLESTATIC [None]
  - IRON DEFICIENCY ANAEMIA [None]
  - MASS [None]
  - MELAENA [None]
  - NORMOCHROMIC NORMOCYTIC ANAEMIA [None]
